FAERS Safety Report 7606557-1 (Version None)
Quarter: 2011Q3

REPORT INFORMATION
  Report Type: 
  Country: None (occurrence: None)
  Receive Date: 20110713
  Receipt Date: 20110630
  Transmission Date: 20111222
  Serious: Yes (Other)
  Sender: FDA-Public Use
  Company Number: PHFR2011IE03511

PATIENT
  Sex: Male

DRUGS (3)
  1. OLANZAPINE [Concomitant]
     Indication: SCHIZOPHRENIA
     Dosage: 15 MG, UNK
     Route: 048
     Dates: start: 20101001
  2. CLOZAPINE [Suspect]
     Dosage: 12.5/25 MG
     Route: 048
  3. CLOZAPINE [Suspect]
     Indication: SCHIZOPHRENIA
     Dosage: 25 MG
     Route: 048
     Dates: start: 20110511

REACTIONS (4)
  - LIP SWELLING [None]
  - HEART RATE INCREASED [None]
  - TACHYCARDIA [None]
  - ANGIOEDEMA [None]
